FAERS Safety Report 8346490-3 (Version None)
Quarter: 2012Q2

REPORT INFORMATION
  Report Type: 
  Country: None (occurrence: None)
  Receive Date: 20120509
  Receipt Date: 20120430
  Transmission Date: 20120825
  Serious: Yes (Other)
  Sender: FDA-Public Use
  Company Number: HK-GENZYME-THYM-1003239

PATIENT
  Age: 37 Year
  Sex: Male

DRUGS (1)
  1. THYMOGLOBULIN [Suspect]
     Indication: ACUTE GRAFT VERSUS HOST DISEASE
     Dosage: UNK
     Route: 065

REACTIONS (3)
  - NECROTISING HERPETIC RETINOPATHY [None]
  - RETINAL DETACHMENT [None]
  - HERPES ZOSTER DISSEMINATED [None]
